FAERS Safety Report 9943142 (Version 2)
Quarter: 2014Q1

REPORT INFORMATION
  Report Type: Spontaneous
  Country: US (occurrence: US)
  Receive Date: 20140303
  Receipt Date: 20140305
  Transmission Date: 20141002
  Serious: Yes (Other)
  Sender: FDA-Public Use
  Company Number: CHPA2014US003144

PATIENT
  Age: 28 Year
  Sex: Female

DRUGS (1)
  1. PREVACID 24HR 15MG [Suspect]
     Dosage: UNK, QD
     Route: 048

REACTIONS (2)
  - Brain neoplasm [Unknown]
  - Incorrect drug administration duration [Unknown]
